FAERS Safety Report 23584058 (Version 1)
Quarter: 2024Q1

REPORT INFORMATION
  Report Type: Report from Study
  Country: US (occurrence: None)
  Receive Date: 20240301
  Receipt Date: 20240301
  Transmission Date: 20240409
  Serious: Yes (Life-Threatening)
  Sender: FDA-Public Use
  Company Number: 2024A049429

PATIENT
  Sex: Female

DRUGS (1)
  1. TRUQAP [Suspect]
     Active Substance: CAPIVASERTIB
     Indication: Breast cancer female
     Dosage: 200 MG-2 TABS BY MOUTH TWICE DAILY FOR 4 DAYS ON, 3 DAYS OFF
     Route: 048
     Dates: start: 20240213

REACTIONS (2)
  - Blood glucose increased [Unknown]
  - Blood potassium decreased [Unknown]
